FAERS Safety Report 17920430 (Version 1)
Quarter: 2020Q2

REPORT INFORMATION
  Report Type: Report from Study
  Country: IN (occurrence: IN)
  Receive Date: 20200620
  Receipt Date: 20200620
  Transmission Date: 20200714
  Serious: Yes (Death)
  Sender: FDA-Public Use
  Company Number: NVSC2020IN173656

PATIENT
  Age: 66 Year
  Sex: Female

DRUGS (1)
  1. NEORAL [Suspect]
     Active Substance: CYCLOSPORINE
     Indication: RENAL TRANSPLANT
     Dosage: 50 MG
     Route: 065
     Dates: start: 20180314, end: 20200416

REACTIONS (1)
  - Death [Fatal]

NARRATIVE: CASE EVENT DATE: 20200417
